FAERS Safety Report 16095754 (Version 1)
Quarter: 2019Q1

REPORT INFORMATION
  Report Type: Spontaneous
  Country: JP (occurrence: JP)
  Receive Date: 20190320
  Receipt Date: 20190320
  Transmission Date: 20190418
  Serious: Yes (Hospitalization)
  Sender: FDA-Public Use
  Company Number: JP-EISAI MEDICAL RESEARCH-EC-2019-051649

PATIENT
  Age: 7 Year
  Sex: Female

DRUGS (6)
  1. PHENOBARBITAL. [Concomitant]
     Active Substance: PHENOBARBITAL
     Dosage: DOSE AND FREQUENCY UNKNOOWN
     Route: 065
  2. SODIUM VALPROATE [Concomitant]
     Active Substance: VALPROATE SODIUM
     Dosage: DOSE AND FREQUENCY UNKNOWN
     Route: 048
  3. PERAMPANEL [Suspect]
     Active Substance: PERAMPANEL
     Dosage: UP-TITRATION EVERY 2-4 WEEKS (DOSE UNKNOWN)
     Route: 048
     Dates: end: 20180403
  4. PERAMPANEL [Suspect]
     Active Substance: PERAMPANEL
     Dates: start: 20180404, end: 20180622
  5. PERAMPANEL [Suspect]
     Active Substance: PERAMPANEL
     Route: 048
     Dates: start: 20180802
  6. PERAMPANEL [Suspect]
     Active Substance: PERAMPANEL
     Indication: LISSENCEPHALY
     Route: 048

REACTIONS (1)
  - Respiratory disorder [Recovering/Resolving]

NARRATIVE: CASE EVENT DATE: 20180622
